FAERS Safety Report 7285118-0 (Version None)
Quarter: 2011Q1

REPORT INFORMATION
  Report Type: 
  Country: None (occurrence: None)
  Receive Date: 20110210
  Receipt Date: 20110131
  Transmission Date: 20110831
  Serious: Yes (Hospitalization)
  Sender: FDA-Public Use
  Company Number: PHHY2010JP88091

PATIENT
  Age: 57 Year
  Sex: Male

DRUGS (4)
  1. MEDROL [Suspect]
     Indication: RENAL TRANSPLANT
     Dosage: UNK
     Route: 048
     Dates: start: 20070101
  2. NEORAL [Suspect]
     Dosage: UNK
     Route: 048
     Dates: start: 20070701
  3. CELLCEPT [Suspect]
     Indication: RENAL TRANSPLANT
     Dosage: UNK
     Route: 048
  4. NEORAL [Suspect]
     Indication: RENAL TRANSPLANT
     Dosage: UNK
     Route: 048
     Dates: start: 20070101

REACTIONS (9)
  - HAEMATURIA [None]
  - CARDIAC DISORDER [None]
  - ADENOVIRUS INFECTION [None]
  - URINARY TRACT INFECTION VIRAL [None]
  - BLOOD CREATININE INCREASED [None]
  - PYREXIA [None]
  - KIDNEY TRANSPLANT REJECTION [None]
  - PYURIA [None]
  - CHEST DISCOMFORT [None]
